FAERS Safety Report 8164468-X (Version None)
Quarter: 2012Q1

REPORT INFORMATION
  Report Type: 
  Country: None (occurrence: None)
  Receive Date: 20120224
  Receipt Date: 20120217
  Transmission Date: 20120608
  Serious: Yes (Hospitalization)
  Sender: FDA-Public Use
  Company Number: TR-ABBOTT-12P-161-0905593-00

PATIENT
  Age: 31 Year
  Sex: Male

DRUGS (3)
  1. CLARITHROMYCIN [Suspect]
     Indication: PNEUMONIA
     Route: 048
  2. CEFUROXIME [Concomitant]
     Indication: PNEUMONIA
     Route: 048
  3. CEFTRIAXONE [Concomitant]
     Indication: PNEUMONIA
     Route: 042

REACTIONS (2)
  - DRUG INEFFECTIVE [None]
  - HISTIOCYTOSIS HAEMATOPHAGIC [None]
